FAERS Safety Report 11064052 (Version 1)
Quarter: 2015Q2

REPORT INFORMATION
  Report Type: Spontaneous
  Country: TR (occurrence: TR)
  Receive Date: 20150424
  Receipt Date: 20150424
  Transmission Date: 20150821
  Serious: Yes (Hospitalization)
  Sender: FDA-Public Use
  Company Number: TR-CIPLA LTD.-2015TR03213

PATIENT

DRUGS (5)
  1. RISPERIDONE. [Suspect]
     Active Substance: RISPERIDONE
     Dosage: 4 MG, QD
     Route: 065
  2. BIPERIDENE [Suspect]
     Active Substance: BIPERIDEN
     Dosage: 4 MG, QD
     Route: 065
  3. RISPERIDONE. [Suspect]
     Active Substance: RISPERIDONE
     Dosage: 2 MG, QD
     Route: 065
  4. SUPENTHIXOL [Suspect]
     Active Substance: FLUPENTIXOL
     Dosage: 20 MG/M2 PER 2 WEEKS
     Route: 030
  5. LORAZEPAM. [Suspect]
     Active Substance: LORAZEPAM
     Dosage: 7.5 MG, QD
     Route: 065

REACTIONS (1)
  - Obsessive-compulsive disorder [Recovered/Resolved]
